FAERS Safety Report 8384750-0 (Version None)
Quarter: 2012Q2

REPORT INFORMATION
  Report Type: 
  Country: None (occurrence: None)
  Receive Date: 20120524
  Receipt Date: 20120517
  Transmission Date: 20120825
  Serious: Yes (Hospitalization)
  Sender: FDA-Public Use
  Company Number: GB-ROCHE-1070236

PATIENT
  Sex: Female
  Weight: 106 kg

DRUGS (2)
  1. MABTHERA [Suspect]
     Indication: RHEUMATOID ARTHRITIS
     Route: 065
     Dates: start: 20101101
  2. AZULFIDINE [Concomitant]

REACTIONS (2)
  - TENOTOMY [None]
  - FOOT DEFORMITY [None]
